FAERS Safety Report 14350889 (Version 1)
Quarter: 2018Q1

REPORT INFORMATION
  Report Type: Spontaneous
  Country: US (occurrence: US)
  Receive Date: 20180104
  Receipt Date: 20180104
  Transmission Date: 20180509
  Serious: Yes (Hospitalization, Other)
  Sender: FDA-Public Use
  Company Number: US-GLAXOSMITHKLINE-US2017200774

PATIENT
  Age: 11 Year
  Sex: Male

DRUGS (10)
  1. ADVAIR HFA [Suspect]
     Active Substance: FLUTICASONE PROPIONATE\SALMETEROL XINAFOATE
     Indication: ASTHMA
     Dosage: 1 PUFF(S), UNK
     Dates: start: 20171226, end: 20171226
  2. ENTYVIO [Concomitant]
     Active Substance: VEDOLIZUMAB
  3. REMICADE [Concomitant]
     Active Substance: INFLIXIMAB
  4. HYDROCORTISONE. [Concomitant]
     Active Substance: HYDROCORTISONE
     Dosage: UNK, STRESS DOSE
  5. VENTOLIN HFA [Suspect]
     Active Substance: ALBUTEROL SULFATE
     Indication: ASTHMA
     Dosage: 2 PUFF(S), PRN
  6. PREVACID [Concomitant]
     Active Substance: LANSOPRAZOLE
  7. FLOVENT [Suspect]
     Active Substance: FLUTICASONE PROPIONATE
     Indication: ASTHMA
     Dosage: 2 PUFF(S), BID
     Dates: end: 20161226
  8. ADVAIR DISKUS [Suspect]
     Active Substance: FLUTICASONE PROPIONATE\SALMETEROL XINAFOATE
     Indication: ASTHMA
  9. FLOVENT [Suspect]
     Active Substance: FLUTICASONE PROPIONATE
     Dosage: 1 PUFF(S), BID
  10. PREDNISOLONE. [Concomitant]
     Active Substance: PREDNISOLONE

REACTIONS (22)
  - Spinal cord compression [Unknown]
  - Colectomy [Unknown]
  - Adrenal insufficiency [Not Recovered/Not Resolved]
  - Growth retardation [Not Recovered/Not Resolved]
  - Intentional product misuse [Unknown]
  - Rectal haemorrhage [Not Recovered/Not Resolved]
  - Osteoporosis [Unknown]
  - Intercepted drug prescribing error [Unknown]
  - Cough [Not Recovered/Not Resolved]
  - Drug dose omission [Unknown]
  - Inflammatory bowel disease [Not Recovered/Not Resolved]
  - Insomnia [Recovered/Resolved]
  - Eczema [Not Recovered/Not Resolved]
  - Spinal compression fracture [Unknown]
  - Gastrointestinal stoma complication [Not Recovered/Not Resolved]
  - Head banging [Unknown]
  - Colitis ulcerative [Not Recovered/Not Resolved]
  - Abnormal behaviour [Unknown]
  - Asthma [Unknown]
  - Vomiting [Recovered/Resolved]
  - Drug ineffective [Unknown]
  - Intentional underdose [Unknown]

NARRATIVE: CASE EVENT DATE: 2012
